FAERS Safety Report 22804825 (Version 3)
Quarter: 2025Q4

REPORT INFORMATION
  Report Type: Other
  Country: EU (occurrence: EU)
  Receive Date: 20230809
  Receipt Date: 20251119
  Transmission Date: 20260117
  Serious: Yes (Hospitalization, Disabling, Other)
  Sender: EMD SERONO INC
  Company Number: None

PATIENT
  Age: 83 Year
  Sex: Female
  Weight: 91 kg

DRUGS (87)
  1. LEVOTHYROXINE SODIUM [Suspect]
     Active Substance: LEVOTHYROXINE SODIUM
     Indication: Product used for unknown indication
     Dosage: 40 MILLIGRAM DAILY;
  2. LEVOTHYROXINE SODIUM [Suspect]
     Active Substance: LEVOTHYROXINE SODIUM
     Dosage: 25 MILIGRAM DAILY
  3. METFORMIN [Interacting]
     Active Substance: METFORMIN HYDROCHLORIDE
     Indication: Type 2 diabetes mellitus
  4. LEVOTHYROXINE [Interacting]
     Active Substance: LEVOTHYROXINE
     Indication: Product used for unknown indication
     Dosage: 100 UG, QD/1-0-0
  5. OMEPRAZOLE [Suspect]
     Active Substance: OMEPRAZOLE
     Indication: Product used for unknown indication
     Dosage: 100 MILLIGRAM, 1-1-0
  6. OMEPRAZOLE [Suspect]
     Active Substance: OMEPRAZOLE
     Indication: Product used for unknown indication
     Dosage: 20 MG, BID/1-1-0
  7. ISOSORBIDE MONONITRATE [Suspect]
     Active Substance: ISOSORBIDE MONONITRATE
     Indication: Product used for unknown indication
     Dosage: UNK (50 MG, AD HOC, USUALLY,1-2 TABLETS A DAY)
  8. ISOSORBIDE MONONITRATE [Suspect]
     Active Substance: ISOSORBIDE MONONITRATE
     Indication: Coronary artery disease
     Dosage: 1 DOSAGE FORM, QD (ISOSORBIDE MONONITRATE: 60.0MG); MODIFIED-RELEASE CAPSULE, HARD
  9. GLICLAZIDE [Suspect]
     Active Substance: GLICLAZIDE
     Indication: Product used for unknown indication
     Dosage: 60 MG, THRICE A DAY
  10. DONEPEZIL [Suspect]
     Active Substance: DONEPEZIL
     Indication: Product used for unknown indication
     Dosage: 5 MG
  11. ATORVASTATIN CALCIUM [Suspect]
     Active Substance: ATORVASTATIN CALCIUM
     Indication: Product used for unknown indication
     Dosage: 1 DF, DAILY
  12. DENOSUMAB [Suspect]
     Active Substance: DENOSUMAB
     Indication: Product used for unknown indication
  13. HYDROXYZINE [Suspect]
     Active Substance: HYDROXYZINE HYDROCHLORIDE
     Indication: Product used for unknown indication
     Dosage: 40 MG, QD/1-0-0/25 MG, AD HOC, USUALLY
  14. HYDROXYZINE [Suspect]
     Active Substance: HYDROXYZINE HYDROCHLORIDE
     Dosage: 2 IOU
  15. HYDROXYZINE [Suspect]
     Active Substance: HYDROXYZINE HYDROCHLORIDE
     Dosage: 25 MILLIGRAM, AS NEEDED, AVERAGE 2 X /24 H
  16. HYDROXYZINE [Suspect]
     Active Substance: HYDROXYZINE HYDROCHLORIDE
  17. HYDROXYZINE [Suspect]
     Active Substance: HYDROXYZINE HYDROCHLORIDE
     Dosage: DOSAGE SCHEDULE: ON DEMAND, TYPICALLY 2 X/24 H
  18. TORSEMIDE [Suspect]
     Active Substance: TORSEMIDE
     Indication: Product used for unknown indication
     Dosage: 5 MG, QD/1-0-0
  19. VORTIOXETINE [Suspect]
     Active Substance: VORTIOXETINE
     Indication: Product used for unknown indication
     Dosage: 10 MG, QD/0-0-1
  20. POTASSIUM CHLORIDE [Suspect]
     Active Substance: POTASSIUM CHLORIDE
     Indication: Product used for unknown indication
     Dosage: 1 TABLET (391 K PLUS) EVERY 2 DAYS (1 DOSAGE FORMS 1 IN 2 DAY)
  21. ZOLPIDEM [Suspect]
     Active Substance: ZOLPIDEM TARTRATE
     Indication: Depression
     Dosage: 100 MG, QD/0-0-1
  22. ZOLPIDEM [Suspect]
     Active Substance: ZOLPIDEM TARTRATE
     Dosage: 10 MILLIGRAM, 0-0-1
  23. ZOLPIDEM [Suspect]
     Active Substance: ZOLPIDEM TARTRATE
     Dosage: 1 DOSAGE FORMS DAILY;
  24. ZOLPIDEM [Suspect]
     Active Substance: ZOLPIDEM TARTRATE
     Dosage: 10 MG, 1X PER DAY
  25. BENSERAZIDE\LEVODOPA [Suspect]
     Active Substance: BENSERAZIDE\LEVODOPA
     Indication: Product used for unknown indication
     Dosage: 8 HOUR
  26. DEXTROSE [Suspect]
     Active Substance: DEXTROSE MONOHYDRATE
     Indication: Product used for unknown indication
     Dosage: 1.5 MG
  27. QUETIAPINE [Suspect]
     Active Substance: QUETIAPINE
     Indication: Product used for unknown indication
     Dosage: 0-0-1
  28. CITALOPRAM [Interacting]
     Active Substance: CITALOPRAM
     Indication: Depression
     Dosage: 1-0-0
  29. CITALOPRAM [Interacting]
     Active Substance: CITALOPRAM
     Dosage: 40 MG, QD/1-0-0/DRUG LIST AT THE ADMISSION
  30. ALPRAZOLAM [Interacting]
     Active Substance: ALPRAZOLAM
     Indication: Depression
     Dosage: 0.5 MG, AVERAGE 2X/24H
  31. ALPRAZOLAM [Interacting]
     Active Substance: ALPRAZOLAM
  32. OMEPRAZOLE [Interacting]
     Active Substance: OMEPRAZOLE
     Indication: Product used for unknown indication
     Dosage: 20 MG, BID/1-1-0
  33. OMEPRAZOLE [Interacting]
     Active Substance: OMEPRAZOLE
     Indication: Product used for unknown indication
     Dosage: 100 MG 1-1-0
  34. ATORVASTATIN [Interacting]
     Active Substance: ATORVASTATIN
     Indication: Product used for unknown indication
     Dosage: 20 MG, QD
  35. ATORVASTATIN [Interacting]
     Active Substance: ATORVASTATIN
     Dosage: 2 DF, QD/0,5 MG, AD HOC, USUALLY
  36. ALLOPURINOL [Interacting]
     Active Substance: ALLOPURINOL
     Indication: Product used for unknown indication
  37. ALLOPURINOL [Interacting]
     Active Substance: ALLOPURINOL
     Dosage: 1-0-0
  38. FUROSEMIDE [Interacting]
     Active Substance: FUROSEMIDE
     Indication: Product used for unknown indication
     Dosage: 3 TABLETS EVERY 2 DAYS
  39. FUROSEMIDE [Interacting]
     Active Substance: FUROSEMIDE
     Indication: Product used for unknown indication
     Dosage: 40 MG
  40. HYDROCHLOROTHIAZIDE [Interacting]
     Active Substance: HYDROCHLOROTHIAZIDE
     Indication: Product used for unknown indication
     Dosage: 25 MG, QD/1-0-0
  41. ACETAMINOPHEN [Interacting]
     Active Substance: ACETAMINOPHEN
     Indication: Product used for unknown indication
     Dosage: 40 MILLIGRAM DAILY;
  42. ACETAMINOPHEN [Interacting]
     Active Substance: ACETAMINOPHEN
  43. ACETAMINOPHEN [Interacting]
     Active Substance: ACETAMINOPHEN
  44. RAMIPRIL [Interacting]
     Active Substance: RAMIPRIL
     Indication: Cardiac failure
     Dosage: 100 MILLIGRAM DAILY;
  45. RAMIPRIL [Interacting]
     Active Substance: RAMIPRIL
     Dosage: 1-0-0
  46. SPIRONOLACTONE [Interacting]
     Active Substance: SPIRONOLACTONE
     Indication: Product used for unknown indication
     Dosage: 100 MG, QD/0-1-0
  47. SPIRONOLACTONE [Interacting]
     Active Substance: SPIRONOLACTONE
     Indication: Product used for unknown indication
  48. BETAHISTINE HYDROCHLORIDE [Interacting]
     Active Substance: BETAHISTINE HYDROCHLORIDE
     Indication: Dizziness
  49. BETAHISTINE [Interacting]
     Active Substance: BETAHISTINE
     Indication: Product used for unknown indication
     Dosage: 24 MG, QD/0-1-0
  50. BETAHISTINE [Interacting]
     Active Substance: BETAHISTINE
     Indication: Product used for unknown indication
  51. BETAHISTINE [Interacting]
     Active Substance: BETAHISTINE
  52. BETAHISTINE [Interacting]
     Active Substance: BETAHISTINE
     Dosage: 40 MILLIGRAM DAILY
  53. DABIGATRAN [Interacting]
     Active Substance: DABIGATRAN
     Indication: Product used for unknown indication
     Dosage: 110 MG, BID/DRUG LIST AT THE ADMISSION
  54. DABIGATRAN [Interacting]
     Active Substance: DABIGATRAN
     Dosage: 110 MG, BID/DRUG LIST AT THE ADMISSION
  55. DABIGATRAN [Interacting]
     Active Substance: DABIGATRAN
     Dosage: 40 MILLIGRAM DAILY
  56. DEXTROSE\NIKETHAMIDE [Interacting]
     Active Substance: DEXTROSE\NIKETHAMIDE
     Indication: Product used for unknown indication
     Dosage: 40 MILLIGRAM DAILY;
  57. DEXTROSE\NIKETHAMIDE [Interacting]
     Active Substance: DEXTROSE\NIKETHAMIDE
     Dosage: 1.5 PLUS 125 MG
  58. HYDROXYZINE [Interacting]
     Active Substance: HYDROXYZINE HYDROCHLORIDE
     Indication: Product used for unknown indication
     Dosage: 25 MILLIGRAM, AS NEEDED, AVERAGE 2 X /24 H
  59. HYDROXYZINE [Interacting]
     Active Substance: HYDROXYZINE HYDROCHLORIDE
  60. HYDROXYZINE [Interacting]
     Active Substance: HYDROXYZINE HYDROCHLORIDE
     Dosage: 2 IOU
  61. METOPROLOL [Interacting]
     Active Substance: METOPROLOL
     Indication: Hypertension
     Dosage: 50 MG, BID/1-0-1/2
  62. METOPROLOL [Interacting]
     Active Substance: METOPROLOL
     Indication: Type 2 diabetes mellitus
     Dosage: DOSAGE SCHEDULE: 1-0-1
  63. METOPROLOL [Interacting]
     Active Substance: METOPROLOL
     Dosage: 1-0-1
  64. METOPROLOL [Interacting]
     Active Substance: METOPROLOL
     Dosage: 1-0-1
  65. METOCLOPRAMIDE [Interacting]
     Active Substance: METOCLOPRAMIDE
     Indication: Constipation
     Dosage: 10 MILLIGRAM, 2 TABLETS AS NEEDED, IN CASE OF CONSTIPATION, BUT FOR MANY MONTHS
  66. NIKETHAMIDE [Interacting]
     Active Substance: NIKETHAMIDE
     Indication: Product used for unknown indication
     Dosage: INTERMITTENTLY
  67. ALBUTEROL [Interacting]
     Active Substance: ALBUTEROL
     Indication: Product used for unknown indication
     Dosage: ON DEMAND, INTERMITTENTLY, PRN
  68. ALBUTEROL [Interacting]
     Active Substance: ALBUTEROL
     Indication: Product used for unknown indication
     Dosage: 20 MG
  69. TRAMADOL [Interacting]
     Active Substance: TRAMADOL
     Indication: Product used for unknown indication
     Dosage: 50 MG
  70. TRAMADOL [Interacting]
     Active Substance: TRAMADOL
     Indication: Pain
     Dosage: AS NEEDED 2 TABLETS
  71. TRAMADOL [Interacting]
     Active Substance: TRAMADOL
     Indication: Pain
     Dosage: 100 MILLIGRAM, AS NEEDED 2 TABLETS
  72. TRAMADOL [Interacting]
     Active Substance: TRAMADOL
     Dosage: IN CASE OF PAIN
  73. TRAMADOL HYDROCHLORIDE [Interacting]
     Active Substance: TRAMADOL HYDROCHLORIDE
     Indication: Product used for unknown indication
     Dosage: 2.0DF UNKNOWN
  74. TRAMADOL HYDROCHLORIDE [Interacting]
     Active Substance: TRAMADOL HYDROCHLORIDE
     Indication: Pain
     Dosage: 100 MG/2 TABLETS, A S NEEDED 2 TABLETS
  75. TRAMADOL HYDROCHLORIDE [Interacting]
     Active Substance: TRAMADOL HYDROCHLORIDE
     Dosage: 50 MG IN CASE OF PAIN
  76. TRAMADOL HYDROCHLORIDE [Interacting]
     Active Substance: TRAMADOL HYDROCHLORIDE
  77. CHOLECALCIFEROL [Interacting]
     Active Substance: CHOLECALCIFEROL
     Indication: Product used for unknown indication
  78. POTASSIUM CHLORIDE [Interacting]
     Active Substance: POTASSIUM CHLORIDE
     Indication: Product used for unknown indication
     Dosage: 1 DF EVERY 2 DAYS/391 MG K
  79. POTASSIUM CHLORIDE [Interacting]
     Active Substance: POTASSIUM CHLORIDE
     Indication: Product used for unknown indication
  80. HYDROXYZINE [Concomitant]
     Active Substance: HYDROXYZINE HYDROCHLORIDE
     Indication: Product used for unknown indication
  81. ACARBOSE [Concomitant]
     Active Substance: ACARBOSE
     Indication: Hyperglycaemia
  82. AMLODIPINE BESYLATE [Concomitant]
     Active Substance: AMLODIPINE BESYLATE
     Indication: Hypertension
     Dosage: 1 DF QD
  83. RUFLOXACIN [Concomitant]
     Active Substance: RUFLOXACIN
     Indication: Nasopharyngitis
     Dosage: 1 DOSAGE FORM, BID
  84. RUFLOXACIN [Concomitant]
     Active Substance: RUFLOXACIN
  85. HYDROTALCITE [Concomitant]
     Active Substance: HYDROTALCITE
     Indication: Abdominal pain upper
     Dosage: 1
  86. LAN DI [AMLODIPINE BESILATE] [Concomitant]
     Indication: Hypertension
     Dosage: 1 DOSAGE FORM, QD (AMLODIPINE BESILATE: 50.0MG )
  87. INSULIN PORK\INSULIN PURIFIED PORK [Concomitant]
     Active Substance: INSULIN PORK\INSULIN PURIFIED PORK
     Indication: Blood glucose abnormal

REACTIONS (64)
  - Hyponatraemia [Unknown]
  - Parkinsonism [Unknown]
  - Dementia [Unknown]
  - Sedation [Recovering/Resolving]
  - Hypoglycaemia [Unknown]
  - Nausea [Unknown]
  - Motor dysfunction [Recovering/Resolving]
  - Constipation [Unknown]
  - Urinary retention [Unknown]
  - Mobility decreased [Recovering/Resolving]
  - Arthralgia [Unknown]
  - Gastric polyps [Unknown]
  - Dizziness [Recovering/Resolving]
  - Atrioventricular block first degree [Recovering/Resolving]
  - Syncope [Recovering/Resolving]
  - Bradykinesia [Unknown]
  - Hypotension [Recovering/Resolving]
  - Muscle rigidity [Unknown]
  - Fall [Recovering/Resolving]
  - Pruritus [Unknown]
  - Abdominal pain upper [Unknown]
  - Hypotension [Unknown]
  - Hypoglycaemia [Recovered/Resolved]
  - Atrioventricular block first degree [Recovering/Resolving]
  - Hyperkalaemia [Unknown]
  - Cognitive disorder [Unknown]
  - Melaena [Unknown]
  - Hiatus hernia [Unknown]
  - Osteoporosis [Unknown]
  - Hyperglycaemia [Unknown]
  - Peripheral circulatory failure [Unknown]
  - Depression [Unknown]
  - Blood creatinine increased [Unknown]
  - General physical health deterioration [Unknown]
  - Orthostatic hypotension [Unknown]
  - Hypotonia [Recovering/Resolving]
  - Blood urea increased [Unknown]
  - Dementia [Unknown]
  - Blood potassium increased [Unknown]
  - Dysuria [Unknown]
  - Neuroglycopenia [Unknown]
  - Blood creatine increased [Unknown]
  - Blood pressure decreased [Unknown]
  - Depression [Unknown]
  - Initial insomnia [Unknown]
  - Diabetes mellitus inadequate control [Unknown]
  - Pruritus [Unknown]
  - Blood cholesterol decreased [Unknown]
  - Hypotonia [Unknown]
  - Melaena [Unknown]
  - Gastrointestinal disorder [Unknown]
  - Abdominal pain upper [Unknown]
  - Dysuria [Unknown]
  - Insomnia [Unknown]
  - Stupor [Unknown]
  - Atrial fibrillation [Unknown]
  - Hypertension [Unknown]
  - Arthralgia [Unknown]
  - Insomnia [Unknown]
  - Drug dependence [Unknown]
  - Hypoglycaemia [Unknown]
  - Drug ineffective [Unknown]
  - Drug interaction [Unknown]
  - Multiple drug therapy [Unknown]

NARRATIVE: CASE EVENT DATE: 20210101
